FAERS Safety Report 5157519-8 (Version None)
Quarter: 2006Q4

REPORT INFORMATION
  Report Type: 
  Country: None (occurrence: None)
  Receive Date: 20061127
  Receipt Date: 20061025
  Transmission Date: 20070319
  Serious: Yes (Other)
  Sender: FDA-Public Use
  Company Number: J200604465

PATIENT
  Age: 31 Year
  Sex: Male

DRUGS (3)
  1. SAWACILLIN [Suspect]
     Dosage: 1500MG PER DAY
     Route: 048
     Dates: start: 20060819
  2. KLARICID [Suspect]
     Dosage: 400MG PER DAY
     Route: 048
     Dates: start: 20060819, end: 20060821
  3. LANSOPRAZOLE [Suspect]
     Dosage: 60MG PER DAY
     Route: 048
     Dates: start: 20060819, end: 20060821

REACTIONS (5)
  - BLISTER [None]
  - ERYTHEMA [None]
  - HYPOAESTHESIA [None]
  - PAIN [None]
  - SWELLING [None]
